FAERS Safety Report 4321132-2 (Version None)
Quarter: 2004Q1

REPORT INFORMATION
  Report Type: 
  Country: None (occurrence: None)
  Receive Date: 20040315
  Receipt Date: 20031113
  Transmission Date: 20041129
  Serious: Yes (Hospitalization)
  Sender: FDA-Public Use
  Company Number: PHEH2003US10502

PATIENT
  Age: 35 Year
  Sex: Male

DRUGS (8)
  1. TRILEPTAL [Suspect]
     Dosage: 300 MG, BID, ORAL
     Route: 048
  2. TOPROL-XL [Concomitant]
  3. VASOTEC [Concomitant]
  4. ADVAIR (SALMETEROL XINAFOATE) [Concomitant]
  5. OXYCONTIN [Concomitant]
  6. OXYCODONE (OXYCODONE) [Concomitant]
  7. CLONAZEPAM [Concomitant]
  8. HYDROMORPHONE HCL [Concomitant]

REACTIONS (1)
  - ANGIONEUROTIC OEDEMA [None]
